FAERS Safety Report 8610641-3 (Version None)
Quarter: 2012Q3

REPORT INFORMATION
  Report Type: 
  Country: None (occurrence: None)
  Receive Date: 20120808
  Receipt Date: 20120730
  Transmission Date: 20120928
  Serious: Yes (Death)
  Sender: FDA-Public Use
  Company Number: AMAG201203077

PATIENT
  Age: 73 Year
  Sex: Male
  Weight: 78 kg

DRUGS (10)
  1. FERAHEME [Suspect]
     Indication: IRON DEFICIENCY ANAEMIA
     Dosage: 510 MG, SINGLE, IV PUSH
     Route: 042
     Dates: start: 20120727, end: 20120727
  2. FERAHEME [Suspect]
     Indication: LYMPHOMA
     Dosage: 510 MG, SINGLE, IV PUSH
     Route: 042
     Dates: start: 20120727, end: 20120727
  3. ZOFRAM (ONDANSETRON HYDROCHLORIDE) [Concomitant]
  4. ONCOVIN [Concomitant]
  5. ALLOPURINOL [Concomitant]
  6. COMPAZINE [Concomitant]
  7. ADRIAMYCIN PFS [Concomitant]
  8. PRILOSEC [Concomitant]
  9. CYTOXAN [Concomitant]
  10. RITUXAN [Concomitant]

REACTIONS (13)
  - ACUTE MYOCARDIAL INFARCTION [None]
  - HEADACHE [None]
  - FLUSHING [None]
  - CARDIAC ARREST [None]
  - RESPIRATORY ARREST [None]
  - ERYTHEMA [None]
  - CARDIO-RESPIRATORY ARREST [None]
  - UNRESPONSIVE TO STIMULI [None]
  - BURNING SENSATION [None]
  - HYPERHIDROSIS [None]
  - BLOOD PRESSURE SYSTOLIC INCREASED [None]
  - SINUS BRADYCARDIA [None]
  - PULSELESS ELECTRICAL ACTIVITY [None]
